FAERS Safety Report 6297164-4 (Version None)
Quarter: 2009Q3

REPORT INFORMATION
  Report Type: 
  Country: None (occurrence: None)
  Receive Date: 20090805
  Receipt Date: 20090727
  Transmission Date: 20100115
  Serious: Yes (Hospitalization)
  Sender: FDA-Public Use
  Company Number: US-BIOGENIDEC-2009BI023769

PATIENT
  Age: 67 Year
  Sex: Female

DRUGS (14)
  1. TYSABRI [Suspect]
     Indication: MULTIPLE SCLEROSIS
     Route: 042
     Dates: start: 20080331
  2. AMBIEN CR [Concomitant]
     Route: 048
     Dates: start: 20080609
  3. CALCIUM, MAGNESIUM, ZINC [Concomitant]
     Dates: start: 20070305
  4. CLOPIDOGREL [Concomitant]
     Dates: start: 20070305
  5. CRANBERRY FRUIT [Concomitant]
     Route: 048
     Dates: start: 20070305
  6. DIOVAN HCT [Concomitant]
     Dates: start: 20061030
  7. ENABLEX [Concomitant]
     Dates: start: 20080303
  8. EQUATE PM [Concomitant]
     Dates: start: 20070305
  9. GABAPENTIN [Concomitant]
     Dates: start: 20070305
  10. LORTAB [Concomitant]
     Dates: start: 20050621
  11. PREMARIN [Concomitant]
     Dates: start: 20050621
  12. PREVACID [Concomitant]
     Dates: start: 20081209
  13. TOPAMAX [Concomitant]
     Dates: start: 20080304
  14. ZYRTEC [Concomitant]
     Dates: start: 20050621

REACTIONS (1)
  - RECTAL HAEMORRHAGE [None]
